FAERS Safety Report 18376304 (Version 2)
Quarter: 2020Q4

REPORT INFORMATION
  Report Type: Report from Study
  Country: MX (occurrence: MX)
  Receive Date: 20201013
  Receipt Date: 20201021
  Transmission Date: 20210114
  Serious: Yes (Other)
  Sender: FDA-Public Use
  Company Number: NVSC2020MX271769

PATIENT
  Sex: Male
  Weight: 86 kg

DRUGS (1)
  1. ENTRESTO [Suspect]
     Active Substance: SACUBITRIL\VALSARTAN
     Indication: CARDIAC FAILURE
     Dosage: 3 DF, QD (2 TABLETS IN MORNING AND 1 TAB IN NIGHT)
     Route: 048
     Dates: start: 20200919

REACTIONS (2)
  - Incorrect dose administered [Unknown]
  - Blindness [Unknown]
